FAERS Safety Report 11909127 (Version 1)
Quarter: 2016Q1

REPORT INFORMATION
  Report Type: Report from Study
  Country: IL (occurrence: IL)
  Receive Date: 20160112
  Receipt Date: 20160112
  Transmission Date: 20160526
  Serious: Yes (Other)
  Sender: FDA-Public Use
  Company Number: IL-ROCHE-1692631

PATIENT
  Age: 44 Year
  Sex: Male

DRUGS (2)
  1. RIBAVIRIN. [Suspect]
     Active Substance: RIBAVIRIN
     Indication: CHRONIC HEPATITIS C
     Route: 065
  2. PEG-INTERFERON ALFA 2A [Suspect]
     Active Substance: PEGINTERFERON ALFA-2A
     Indication: CHRONIC HEPATITIS C
     Route: 065

REACTIONS (3)
  - Urticaria [Recovered/Resolved]
  - Anaemia [Recovered/Resolved]
  - Cytopenia [Recovered/Resolved]

NARRATIVE: CASE EVENT DATE: 20121218
